FAERS Safety Report 6112403-8 (Version None)
Quarter: 2009Q1

REPORT INFORMATION
  Report Type: 
  Country: None (occurrence: None)
  Receive Date: 20090311
  Receipt Date: 20090311
  Transmission Date: 20090719
  Serious: Yes (Hospitalization)
  Sender: FDA-Public Use
  Company Number: None

PATIENT
  Sex: Female
  Weight: 101.8 kg

DRUGS (1)
  1. CARBOPLATIN [Suspect]
     Dosage: 857 MG

REACTIONS (4)
  - ABDOMINAL PAIN UPPER [None]
  - BRADYCARDIA [None]
  - PULSE PRESSURE DECREASED [None]
  - VOMITING [None]
